FAERS Safety Report 10392439 (Version 1)
Quarter: 2014Q3

REPORT INFORMATION
  Report Type: Spontaneous
  Country: US (occurrence: None)
  Receive Date: 20140815
  Receipt Date: 20140815
  Transmission Date: 20150326
  Serious: Yes (Death)
  Sender: FDA-Public Use
  Company Number: 2014US01016

PATIENT
  Age: 06 Year
  Sex: Male

DRUGS (2)
  1. CARBOPLATIN. [Suspect]
     Active Substance: CARBOPLATIN
     Indication: HEPATOBLASTOMA
     Dosage: 350 MG/M2, SINGLE
  2. HEMODIALYSIS [Suspect]
     Active Substance: DEVICE
     Indication: KIDNEY MALFORMATION

REACTIONS (4)
  - Cardiopulmonary failure [None]
  - Enterobacter sepsis [None]
  - Klebsiella sepsis [None]
  - Septic shock [None]
